FAERS Safety Report 7324798-8 (Version None)
Quarter: 2011Q1

REPORT INFORMATION
  Report Type: 
  Country: None (occurrence: None)
  Receive Date: 20110301
  Receipt Date: 20110221
  Transmission Date: 20110831
  Serious: Yes (Hospitalization)
  Sender: FDA-Public Use
  Company Number: US-B.I. PHARMACEUTICALS,INC./RIDGEFIELD-2011-BP-04775BP

PATIENT
  Sex: Male

DRUGS (9)
  1. PRADAXA [Suspect]
     Indication: ANTICOAGULANT THERAPY
     Dosage: 300 MG
     Route: 048
     Dates: start: 20110201, end: 20110201
  2. RENAX [Concomitant]
     Indication: CARDIAC DISORDER
     Dosage: 1000 MG
  3. LISINOPRIL [Concomitant]
     Indication: HYPERTENSION
     Dosage: 40 MG
  4. COREG [Concomitant]
     Indication: CARDIAC DISORDER
     Dosage: 75 MG
  5. ZANTAC [Concomitant]
     Indication: PROPHYLAXIS
     Dosage: 150 MG
  6. MULTIVITAMIN [Concomitant]
     Indication: PROPHYLAXIS
  7. VYTORIN/ZETIA [Concomitant]
     Indication: BLOOD CHOLESTEROL INCREASED
  8. PLAVIX [Concomitant]
     Indication: ANTICOAGULANT THERAPY
     Dosage: 75 MG
  9. MICARDIS [Concomitant]
     Indication: HYPERTENSION
     Dosage: 40 MG
     Dates: start: 20110101

REACTIONS (2)
  - GASTROINTESTINAL HAEMORRHAGE [None]
  - FAECES DISCOLOURED [None]
